FAERS Safety Report 8569385 (Version 5)
Quarter: 2013Q3

REPORT INFORMATION
  Report Type: Spontaneous
  Country: US (occurrence: US)
  Receive Date: 20120518
  Receipt Date: 20130903
  Transmission Date: 20140515
  Serious: Yes (Other)
  Sender: FDA-Public Use
  Company Number: US-009507513-1111USA02478

PATIENT
  Sex: Female
  Weight: 58.6 kg

DRUGS (1)
  1. FOSAMAX [Suspect]
     Indication: OSTEOPOROSIS PROPHYLAXIS
     Dosage: 70 MG, QW
     Route: 048
     Dates: start: 200111, end: 200801

REACTIONS (43)
  - Ankle fracture [Unknown]
  - Osteonecrosis of jaw [Not Recovered/Not Resolved]
  - Osteomyelitis [Not Recovered/Not Resolved]
  - Bone loss [Not Recovered/Not Resolved]
  - Fracture [Unknown]
  - Coronary artery disease [Unknown]
  - Chronic obstructive pulmonary disease [Not Recovered/Not Resolved]
  - Infection [Unknown]
  - Dental caries [Recovering/Resolving]
  - Gingivitis [Not Recovered/Not Resolved]
  - Tooth disorder [Unknown]
  - Tooth infection [Recovering/Resolving]
  - Sensitivity of teeth [Unknown]
  - Dental caries [Unknown]
  - Dental caries [Unknown]
  - Rheumatoid arthritis [Unknown]
  - Bruxism [Unknown]
  - Temporomandibular joint syndrome [Unknown]
  - Tooth fracture [Unknown]
  - Jaw fracture [Unknown]
  - Periodontitis [Unknown]
  - Cystitis [Unknown]
  - Metabolic syndrome [Unknown]
  - Insomnia [Recovered/Resolved]
  - Type 2 diabetes mellitus [Not Recovered/Not Resolved]
  - Left ventricular hypertrophy [Not Recovered/Not Resolved]
  - Seborrhoeic keratosis [Unknown]
  - Dyspnoea paroxysmal nocturnal [Unknown]
  - Microalbuminuria [Unknown]
  - Osteopenia [Not Recovered/Not Resolved]
  - Pain [Unknown]
  - Body tinea [Unknown]
  - Dyspnoea [Unknown]
  - Chest pain [Unknown]
  - Bronchitis [Unknown]
  - Bronchitis [Recovered/Resolved]
  - Chronic obstructive pulmonary disease [Recovered/Resolved]
  - Haemoptysis [Unknown]
  - Vertigo [Unknown]
  - Abdominal pain lower [Not Recovered/Not Resolved]
  - Oedema peripheral [Unknown]
  - Arthralgia [Unknown]
  - Drug ineffective [Unknown]
